FAERS Safety Report 23954791 (Version 1)
Quarter: 2024Q2

REPORT INFORMATION
  Report Type: Spontaneous
  Country: US (occurrence: None)
  Receive Date: 20240610
  Receipt Date: 20240610
  Transmission Date: 20240716
  Serious: Yes (Hospitalization, Other)
  Sender: FDA-Public Use
  Company Number: US-Orexo US, Inc.-ORE202405-000025

PATIENT
  Age: 44 Year
  Sex: Female
  Weight: 68.03 kg

DRUGS (3)
  1. ZUBSOLV [Suspect]
     Active Substance: BUPRENORPHINE HYDROCHLORIDE\NALOXONE HYDROCHLORIDE
     Indication: Pain
     Dosage: UNKNOWN
     Route: 060
     Dates: start: 2017, end: 202403
  2. ZUBSOLV [Suspect]
     Active Substance: BUPRENORPHINE HYDROCHLORIDE\NALOXONE HYDROCHLORIDE
     Dosage: UNKNOWN
     Route: 060
     Dates: start: 2017, end: 202403
  3. TRELEGY ELLIPTA [Concomitant]
     Active Substance: FLUTICASONE FUROATE\UMECLIDINIUM BROMIDE\VILANTEROL TRIFENATATE
     Indication: Cardiac failure congestive
     Dosage: UNKNOWN

REACTIONS (6)
  - Pneumonia bacterial [Unknown]
  - Myocardial infarction [Unknown]
  - Pneumonia viral [Unknown]
  - COVID-19 [Unknown]
  - Treatment noncompliance [Unknown]
  - Off label use [Unknown]

NARRATIVE: CASE EVENT DATE: 20170101
